FAERS Safety Report 8996994 (Version 2)
Quarter: 2013Q1

REPORT INFORMATION
  Report Type: Spontaneous
  Country: PL (occurrence: PL)
  Receive Date: 20130104
  Receipt Date: 20130122
  Transmission Date: 20140127
  Serious: Yes (Hospitalization)
  Sender: FDA-Public Use
  Company Number: PL-AMGEN-POLSP2012084166

PATIENT
  Age: 60 Year
  Sex: Male
  Weight: 54 kg

DRUGS (9)
  1. ARANESP [Suspect]
     Indication: ANAEMIA
     Dosage: 10 MUG, QWK
     Route: 042
     Dates: start: 20120801
  2. AXTIL [Concomitant]
     Indication: HYPERTENSION
     Dosage: 5 MG, QD
     Route: 048
     Dates: start: 20120803
  3. BETO ZK [Concomitant]
     Indication: HYPERTENSION
     Dosage: 50 MUG, QD
     Route: 048
     Dates: start: 20120803
  4. FUROSEMIDUM                        /00032601/ [Concomitant]
     Indication: DIURETIC THERAPY
     Dosage: 40 MG, 4 TIMES/WK
     Route: 048
     Dates: start: 20120702
  5. ALFADIOL [Concomitant]
     Indication: HYPERPARATHYROIDISM SECONDARY
     Dosage: 0.25 MUG, 2 TIMES/WK
     Route: 048
     Dates: start: 20121207
  6. CALPEROS                           /07357001/ [Concomitant]
     Indication: SECONDARY HYPERTHYROIDISM
     Dosage: 1 G, BID
     Route: 048
     Dates: start: 20120702
  7. AGEN [Concomitant]
     Indication: HYPERTENSION
     Dosage: 10 MG, BID
     Route: 048
     Dates: start: 20120808
  8. CARDURA XL [Concomitant]
     Indication: HYPERTENSION
     Dosage: 4 MG, QD
     Route: 048
     Dates: start: 20120702
  9. FERRINEMIA [Concomitant]
     Indication: ANAEMIA
     Dosage: 100 MUG, UNK
     Route: 042
     Dates: start: 20121008

REACTIONS (1)
  - Arteriovenous fistula thrombosis [Not Recovered/Not Resolved]
